FAERS Safety Report 15250859 (Version 1)
Quarter: 2018Q3

REPORT INFORMATION
  Report Type: Spontaneous
  Country: FR (occurrence: FR)
  Receive Date: 20180807
  Receipt Date: 20180807
  Transmission Date: 20181010
  Serious: Yes (Death)
  Sender: FDA-Public Use
  Company Number: PHHY2018FR050459

PATIENT
  Age: 6 Year
  Sex: Female

DRUGS (2)
  1. DABRAFENIB [Suspect]
     Active Substance: DABRAFENIB
     Indication: ANAPLASTIC ASTROCYTOMA
     Dosage: UNK
     Route: 065
  2. TEMOZOLOMIDE. [Suspect]
     Active Substance: TEMOZOLOMIDE
     Indication: OLIGOASTROCYTOMA
     Route: 048

REACTIONS (4)
  - Drug ineffective [Fatal]
  - Anaplastic astrocytoma [Fatal]
  - Malignant neoplasm progression [Fatal]
  - Product use issue [Unknown]
